FAERS Safety Report 9343674 (Version 2)
Quarter: 2014Q1

REPORT INFORMATION
  Report Type: Spontaneous
  Country: FR (occurrence: FR)
  Receive Date: 20130612
  Receipt Date: 20140218
  Transmission Date: 20141002
  Serious: Yes (Life-Threatening)
  Sender: FDA-Public Use
  Company Number: FR-ROCHE-1235664

PATIENT
  Age: 65 Year
  Sex: Male

DRUGS (12)
  1. CYMEVAN [Suspect]
     Indication: CYTOMEGALOVIRUS INFECTION
     Route: 041
     Dates: start: 201302, end: 20130511
  2. CYMEVAN [Suspect]
     Route: 041
     Dates: start: 20130508, end: 20130511
  3. CANCIDAS [Concomitant]
     Route: 065
     Dates: start: 20130512
  4. ACUPAN [Concomitant]
     Route: 048
  5. VANCOMYCINE [Concomitant]
     Route: 042
     Dates: start: 20130506, end: 20130515
  6. TRAMADOL [Concomitant]
     Route: 048
     Dates: start: 20130507, end: 20130509
  7. AXEPIM [Concomitant]
     Route: 042
     Dates: start: 20130508, end: 20130510
  8. ULCAR (FRANCE) [Concomitant]
     Route: 048
  9. NEORAL [Concomitant]
     Route: 048
  10. MORPHINE [Concomitant]
     Route: 048
     Dates: start: 20130504, end: 20130513
  11. HYDROCORTISONE HEMISUCCINATE [Concomitant]
     Route: 042
  12. EUPRESSYL [Concomitant]
     Route: 048
     Dates: start: 20130507, end: 20130508

REACTIONS (2)
  - Agranulocytosis [Recovered/Resolved]
  - Anaemia [Recovered/Resolved]
